FAERS Safety Report 20706687 (Version 1)
Quarter: 2022Q2

REPORT INFORMATION
  Report Type: Spontaneous
  Country: US (occurrence: US)
  Receive Date: 20220413
  Receipt Date: 20220413
  Transmission Date: 20220721
  Serious: No
  Sender: FDA-Public Use
  Company Number: US-SA-SAC20220412001157

PATIENT
  Sex: Female

DRUGS (1)
  1. AUBAGIO [Suspect]
     Active Substance: TERIFLUNOMIDE
     Indication: Multiple sclerosis
     Dosage: 14 MG, QOD
     Route: 048
     Dates: start: 20190806

REACTIONS (5)
  - Scoliosis [Not Recovered/Not Resolved]
  - Cardiac disorder [Unknown]
  - Ill-defined disorder [Unknown]
  - Stent placement [Unknown]
  - Product use issue [Unknown]
